FAERS Safety Report 5193211-1 (Version None)
Quarter: 2006Q4

REPORT INFORMATION
  Report Type: 
  Country: None (occurrence: None)
  Receive Date: 20061228
  Receipt Date: 20060707
  Transmission Date: 20070319
  Serious: No
  Sender: FDA-Public Use
  Company Number: US-GLAXOSMITHKLINE-A0611439A

PATIENT
  Sex: Male

DRUGS (7)
  1. AVODART [Suspect]
     Indication: BENIGN PROSTATIC HYPERPLASIA
     Dosage: 5MG PER DAY
     Route: 048
     Dates: start: 20050701
  2. FLOMAX [Concomitant]
  3. ALOPURINOL [Concomitant]
  4. WATER PILL [Concomitant]
  5. ASPIRIN [Concomitant]
  6. NEURONTIN [Concomitant]
  7. LIPITOR [Concomitant]

REACTIONS (4)
  - BREAST ENLARGEMENT [None]
  - BREAST TENDERNESS [None]
  - NIPPLE DISORDER [None]
  - NIPPLE PAIN [None]
